FAERS Safety Report 7297011-8 (Version None)
Quarter: 2011Q1

REPORT INFORMATION
  Report Type: 
  Country: None (occurrence: None)
  Receive Date: 20110216
  Receipt Date: 20110209
  Transmission Date: 20110831
  Serious: Yes (Life-Threatening, Hospitalization)
  Sender: FDA-Public Use
  Company Number: NO-JNJFOC-20110202954

PATIENT
  Sex: Male

DRUGS (7)
  1. FOLIC ACID [Concomitant]
     Route: 048
  2. OXYCONTIN [Concomitant]
     Route: 048
  3. REMICADE [Suspect]
     Indication: PSORIATIC ARTHROPATHY
     Route: 042
  4. METHOTREXATE [Concomitant]
     Route: 065
  5. VIVAL [Concomitant]
     Route: 048
  6. KETORAX [Concomitant]
     Route: 048
  7. RIVOTRIL [Concomitant]
     Route: 048

REACTIONS (7)
  - TREMOR [None]
  - SYNCOPE [None]
  - RESPIRATORY ARREST [None]
  - INFUSION RELATED REACTION [None]
  - SKIN WARM [None]
  - PULSE ABSENT [None]
  - ERYTHEMA [None]
